FAERS Safety Report 5485446-5 (Version None)
Quarter: 2007Q4

REPORT INFORMATION
  Report Type: 
  Country: None (occurrence: None)
  Receive Date: 20071011
  Receipt Date: 20071001
  Transmission Date: 20080405
  Serious: Yes (Death)
  Sender: FDA-Public Use
  Company Number: 162112ISR

PATIENT
  Age: 63 Year
  Sex: Male

DRUGS (2)
  1. ZOLPIDEM TARTRATE [Suspect]
     Indication: AGITATION
     Dosage: (10MG); ORAL
     Route: 048
     Dates: start: 20061003
  2. ZOLPIDEM TARTRATE [Suspect]
     Indication: INSOMNIA
     Dosage: (10MG); ORAL
     Route: 048
     Dates: start: 20061003

REACTIONS (2)
  - ASPHYXIA [None]
  - COMPLETED SUICIDE [None]
